FAERS Safety Report 4711927-5 (Version None)
Quarter: 2005Q2

REPORT INFORMATION
  Report Type: 
  Country: None (occurrence: None)
  Receive Date: 20050629
  Receipt Date: 20050310
  Transmission Date: 20051028
  Serious: No
  Sender: FDA-Public Use
  Company Number: 05P-163-0293591-00

PATIENT
  Age: 63 Year
  Sex: Female
  Weight: 88.4514 kg

DRUGS (7)
  1. HUMIRA [Suspect]
     Indication: RHEUMATOID ARTHRITIS
     Dosage: 40 MG, 1 IN 2 WK, SUBCUTANEOUS
     Route: 058
     Dates: start: 20050209
  2. AMLODIPINE BESYLATE [Concomitant]
  3. LOTREL [Concomitant]
  4. HYDROXYCHLOROQUINE PHOSPHATE [Concomitant]
  5. BEXTRA [Concomitant]
  6. FORTAMET [Concomitant]
  7. ISONIAZID [Concomitant]

REACTIONS (2)
  - INJECTION SITE HAEMORRHAGE [None]
  - VESSEL PUNCTURE SITE BRUISE [None]
